FAERS Safety Report 19073076 (Version 2)
Quarter: 2021Q3

REPORT INFORMATION
  Report Type: Report from Study
  Country: US (occurrence: US)
  Receive Date: 20210330
  Receipt Date: 20210802
  Transmission Date: 20211014
  Serious: Yes (Other)
  Sender: FDA-Public Use
  Company Number: US-TAKEDA-US202025439

PATIENT
  Sex: Female

DRUGS (1)
  1. HUMAN NORMAL IMMUNOGLOBULIN; LIQUID [Suspect]
     Active Substance: HUMAN IMMUNOGLOBULIN G
     Indication: IMMUNODEFICIENCY COMMON VARIABLE
     Route: 042

REACTIONS (11)
  - Infection [Unknown]
  - Arthropathy [Unknown]
  - Arthralgia [Unknown]
  - Functional gastrointestinal disorder [Unknown]
  - Arthropod bite [Unknown]
  - Headache [Unknown]
  - Thermal burn [Unknown]
  - Renal impairment [Unknown]
  - Fatigue [Unknown]
  - Shoulder operation [Unknown]
  - Wound [Unknown]
